FAERS Safety Report 10023955 (Version 1)
Quarter: 2014Q1

REPORT INFORMATION
  Report Type: Report from Study
  Country: US (occurrence: None)
  Receive Date: 20140123
  Receipt Date: 20140123
  Transmission Date: 20141002
  Serious: Yes (Other)
  Sender: FDA-Public Use
  Company Number: US-2013-11474

PATIENT
  Age: 41 Year
  Sex: Male

DRUGS (5)
  1. TOLVAPTAN [Suspect]
     Indication: CONGENITAL CYSTIC KIDNEY DISEASE
     Route: 048
     Dates: start: 20120908, end: 20130426
  2. BENICAR [Concomitant]
  3. VITAMIN B12 (CYANOCOBALAMIN) [Concomitant]
  4. VITAMIN D (ERGOCALCIFEROL) [Concomitant]
  5. TOPROL (METOPROLOL SUCCINATE) [Concomitant]

REACTIONS (1)
  - Urticaria [None]
